FAERS Safety Report 5717166-3 (Version None)
Quarter: 2008Q2

REPORT INFORMATION
  Report Type: 
  Country: None (occurrence: None)
  Receive Date: 20080424
  Receipt Date: 20080414
  Transmission Date: 20081010
  Serious: Yes (Other)
  Sender: FDA-Public Use
  Company Number: GB-PFIZER INC-2008033758

PATIENT
  Age: 58 Year
  Sex: Female
  Weight: 62.5 kg

DRUGS (3)
  1. CHAMPIX [Suspect]
     Indication: SMOKING CESSATION THERAPY
     Route: 048
     Dates: start: 20080219, end: 20080324
  2. LEVOTHYROXINE SODIUM [Concomitant]
     Route: 048
  3. PARACETAMOL [Concomitant]
     Route: 048

REACTIONS (2)
  - HYPERSENSITIVITY [None]
  - RASH [None]
